FAERS Safety Report 5840185-3 (Version None)
Quarter: 2008Q3

REPORT INFORMATION
  Report Type: 
  Country: None (occurrence: None)
  Receive Date: 20080730
  Receipt Date: 20080423
  Transmission Date: 20090109
  Serious: No
  Sender: FDA-Public Use
  Company Number: PHEH2008US04075

PATIENT
  Sex: Female

DRUGS (1)
  1. TEKTURNA [Suspect]

REACTIONS (1)
  - NIGHTMARE [None]
